FAERS Safety Report 8060189-2 (Version None)
Quarter: 2012Q1

REPORT INFORMATION
  Report Type: 
  Country: None (occurrence: None)
  Receive Date: 20120120
  Receipt Date: 20110927
  Transmission Date: 20120608
  Serious: Yes (Hospitalization)
  Sender: FDA-Public Use
  Company Number: US-ROCHE-GNE304497

PATIENT
  Sex: Female
  Weight: 84.444 kg

DRUGS (21)
  1. ARMODAFINIL [Concomitant]
     Indication: FUNGAL INFECTION
  2. PREDNISONE [Concomitant]
     Indication: BRONCHITIS
  3. EXTRA STRENGTH TYLENOL HEADACHE PLUS [Concomitant]
     Indication: HEADACHE
     Dosage: UNK
  4. XOPENEX [Concomitant]
     Indication: ASTHMA
     Dosage: UNK
  5. AUGMENTIN '125' [Concomitant]
     Indication: SINUSITIS
  6. VITAMIN AND MINERAL PRENATAL SUPPLEMENT W/ FOLIC ACID CAP [Concomitant]
     Indication: PREGNANCY
     Dosage: UNK
  7. VENTOLIN [Concomitant]
     Indication: ASTHMA
     Dosage: UNK
  8. ONDANSETRON HCL [Concomitant]
     Indication: VOMITING
  9. ZITHROMAX [Concomitant]
     Indication: BRONCHITIS
  10. PREDNISONE [Concomitant]
     Indication: ASTHMA
     Dosage: UNK
  11. AUGMENTIN '125' [Concomitant]
     Indication: OTITIS MEDIA
  12. CLARITIN [Concomitant]
     Indication: HYPERSENSITIVITY
     Dosage: UNK
  13. ONDANSETRON HCL [Concomitant]
     Indication: NAUSEA
     Dosage: UNK
  14. ZOLOFT [Concomitant]
     Indication: ANXIETY
     Dosage: UNK
  15. PEPCID [Concomitant]
     Indication: DYSPEPSIA
     Dosage: UNK
  16. ALDOMET [Concomitant]
     Indication: HYPERTENSION
     Dosage: UNK
  17. HYDROXYZINE [Concomitant]
     Indication: INSOMNIA
  18. OMALIZUMAB [Suspect]
     Indication: ASTHMA
     Dosage: 375 MG, Q2W
     Route: 058
     Dates: start: 20060324
  19. ALLERGY SHOTS [Concomitant]
     Indication: HYPERSENSITIVITY
     Dosage: UNK
  20. HYDROXYZINE [Concomitant]
     Indication: ANXIETY
     Dosage: UNK
  21. QVAR 40 [Concomitant]
     Indication: ASTHMA
     Dosage: UNK

REACTIONS (2)
  - MATERNAL EXPOSURE DURING PREGNANCY [None]
  - POLYHYDRAMNIOS [None]
